FAERS Safety Report 11588920 (Version 1)
Quarter: 2015Q4

REPORT INFORMATION
  Report Type: Spontaneous
  Country: CN (occurrence: CN)
  Receive Date: 20151002
  Receipt Date: 20151002
  Transmission Date: 20160304
  Serious: Yes (Other)
  Sender: FDA-Public Use
  Company Number: CN-RECORDATI RARE DISEASES-CN-R13005-15-00157

PATIENT
  Age: 21 Year
  Sex: Female

DRUGS (3)
  1. MECHLORETHAMINE [Suspect]
     Active Substance: MECHLORETHAMINE
     Indication: HODGKIN^S DISEASE
     Route: 042
     Dates: start: 201403, end: 201412
  2. ADCETRIS [Suspect]
     Active Substance: BRENTUXIMAB VEDOTIN
     Dosage: 1.2 - 1.8 MG/KG
     Route: 041
     Dates: start: 201403, end: 201412
  3. ADCETRIS [Suspect]
     Active Substance: BRENTUXIMAB VEDOTIN
     Indication: HODGKIN^S DISEASE
     Route: 042

REACTIONS (3)
  - Gastrointestinal disorder [Unknown]
  - Bone marrow failure [Unknown]
  - Treatment failure [None]
